FAERS Safety Report 14928828 (Version 2)
Quarter: 2018Q3

REPORT INFORMATION
  Report Type: Spontaneous
  Country: CA (occurrence: CA)
  Receive Date: 20180523
  Receipt Date: 20180920
  Transmission Date: 20181010
  Serious: Yes (Hospitalization)
  Sender: FDA-Public Use
  Company Number: CA-PFIZER INC-2018208527

PATIENT
  Age: 80 Year
  Sex: Female

DRUGS (3)
  1. HYDROXYCHLOROQUINE [Concomitant]
     Active Substance: HYDROXYCHLOROQUINE
     Dosage: 200 MG, DAILY
     Dates: start: 2012
  2. METHOTREXATE SODIUM. [Suspect]
     Active Substance: METHOTREXATE SODIUM
     Indication: RHEUMATOID ARTHRITIS
     Dosage: 17.5 MG, WEEKLY
     Dates: start: 2012
  3. XELJANZ [Suspect]
     Active Substance: TOFACITINIB CITRATE
     Indication: RHEUMATOID ARTHRITIS
     Dosage: 5 MG, 2X/DAY
     Route: 048
     Dates: start: 20171113

REACTIONS (4)
  - Spinal column injury [Not Recovered/Not Resolved]
  - Urinary tract infection [Unknown]
  - Product blister packaging issue [Unknown]
  - Fall [Unknown]

NARRATIVE: CASE EVENT DATE: 20180307
